FAERS Safety Report 22289752 (Version 1)
Quarter: 2023Q2

REPORT INFORMATION
  Report Type: Spontaneous
  Country: US (occurrence: None)
  Receive Date: 20230504
  Receipt Date: 20230504
  Transmission Date: 20230721
  Serious: Yes (Other)
  Sender: FDA-Public Use
  Company Number: None

PATIENT
  Age: 9 Month
  Sex: Male

DRUGS (1)
  1. SPF 50 MINERAL SUNSCREEN BABYGANICS [Suspect]
     Active Substance: TITANIUM DIOXIDE\ZINC OXIDE
     Indication: Prophylaxis against solar radiation
     Dosage: OTHER STRENGTH : SPF 50;?
     Route: 061
     Dates: start: 20220601, end: 20230501

REACTIONS (1)
  - Seizure [None]

NARRATIVE: CASE EVENT DATE: 20220613
